FAERS Safety Report 8381139-5 (Version None)
Quarter: 2012Q2

REPORT INFORMATION
  Report Type: 
  Country: None (occurrence: None)
  Receive Date: 20120523
  Receipt Date: 20120521
  Transmission Date: 20120825
  Serious: Yes (Other)
  Sender: FDA-Public Use
  Company Number: US-PURDUE-USA-2012-0087388

PATIENT
  Sex: Male

DRUGS (1)
  1. SENOKOT [Suspect]
     Indication: CONSTIPATION

REACTIONS (2)
  - NEPHROLITHIASIS [None]
  - WRONG TECHNIQUE IN DRUG USAGE PROCESS [None]
